FAERS Safety Report 13912453 (Version 2)
Quarter: 2017Q3

REPORT INFORMATION
  Report Type: Spontaneous
  Country: US (occurrence: US)
  Receive Date: 20170828
  Receipt Date: 20170905
  Transmission Date: 20171127
  Serious: Yes (Other)
  Sender: FDA-Public Use
  Company Number: US-PFIZER INC-2017316170

PATIENT
  Age: 63 Year
  Sex: Female
  Weight: 88.45 kg

DRUGS (3)
  1. PREDNISONE. [Concomitant]
     Active Substance: PREDNISONE
     Dosage: UNK
  2. METHOTREXATE. [Concomitant]
     Active Substance: METHOTREXATE
     Dosage: UNK
  3. XELJANZ XR [Suspect]
     Active Substance: TOFACITINIB CITRATE
     Indication: RHEUMATOID ARTHRITIS
     Dosage: 11 MG, 1X/DAY
     Route: 048
     Dates: start: 201707, end: 201708

REACTIONS (5)
  - Gastritis [Recovering/Resolving]
  - Abdominal pain upper [Unknown]
  - Oesophageal stenosis [Recovering/Resolving]
  - Electrocardiogram QT interval abnormal [Unknown]
  - Diverticulitis [Unknown]

NARRATIVE: CASE EVENT DATE: 201707
